FAERS Safety Report 9704350 (Version 3)
Quarter: 2013Q4

REPORT INFORMATION
  Report Type: Spontaneous
  Country: BR (occurrence: BR)
  Receive Date: 20131122
  Receipt Date: 20131202
  Transmission Date: 20140711
  Serious: Yes (Death, Other)
  Sender: FDA-Public Use
  Company Number: BR-PFIZER INC-2012304835

PATIENT
  Age: 83 Year
  Sex: Female
  Weight: 66 kg

DRUGS (12)
  1. SUTENT [Suspect]
     Indication: RENAL CELL CARCINOMA
     Dosage: 25 MG ONCE DAILY CYCLIC (CYCLE 4 TO 2)
     Route: 048
     Dates: start: 20120926
  2. DIOVAN HCT [Concomitant]
     Dosage: 1 DF, 1X/DAY 320MG/12.5 MG
  3. MANIVASC [Concomitant]
     Dosage: 20 MG, 1X/DAY
  4. ALDOMET [Concomitant]
     Dosage: 500 MG, 4X/DAY
  5. NEBILET [Concomitant]
     Dosage: 5 MG, 1X/DAY AFTER THE BREAKFAST
  6. VYTORIN [Concomitant]
     Dosage: 1 DF 10MG/20 MG AT NIGHT, 1X/DAY
  7. ASPIRINA PREVENT [Concomitant]
     Dosage: 10 MG, 1X/DAY
  8. APRAZ [Concomitant]
     Indication: BLOOD PRESSURE INCREASED
     Dosage: 0.5 MG, AS NEEDED
  9. ANGIOPRIL [Concomitant]
     Dosage: 20 MG, 1X/DAY
  10. DIOVAN [Concomitant]
     Dosage: 12.5 MG, 1X/DAY
  11. LASIX [Concomitant]
     Dosage: 40 MG, 1X/DAY
  12. CAPTOPRIL [Concomitant]
     Indication: BLOOD PRESSURE INCREASED
     Dosage: UNK

REACTIONS (18)
  - Death [Fatal]
  - Blood pressure increased [Recovered/Resolved]
  - Blood pressure increased [Unknown]
  - Blood pressure increased [Unknown]
  - Blood pressure increased [Recovered/Resolved]
  - Arteriosclerosis [Not Recovered/Not Resolved]
  - Depressed mood [Unknown]
  - Sluggishness [Not Recovered/Not Resolved]
  - Diarrhoea [Recovered/Resolved]
  - Bone pain [Unknown]
  - Aphthous stomatitis [Unknown]
  - Decreased appetite [Unknown]
  - Dysgeusia [Unknown]
  - Pain in extremity [Unknown]
  - Limb injury [Unknown]
  - Disease progression [Unknown]
  - Renal cell carcinoma [Unknown]
  - Pleural effusion [Unknown]
